FAERS Safety Report 5674105-1 (Version None)
Quarter: 2008Q1

REPORT INFORMATION
  Report Type: 
  Country: None (occurrence: None)
  Receive Date: 20080320
  Receipt Date: 20080314
  Transmission Date: 20080703
  Serious: Yes (Congenital Anomaly)
  Sender: FDA-Public Use
  Company Number: FR-JNJFOC-20080303596

PATIENT
  Sex: Female
  Weight: 2.63 kg

DRUGS (2)
  1. EPITOMAX [Suspect]
     Indication: DRUG EXPOSURE DURING PREGNANCY
  2. DEPAKENE [Suspect]
     Indication: DRUG EXPOSURE DURING PREGNANCY

REACTIONS (6)
  - ATRIAL SEPTAL DEFECT [None]
  - DYSMORPHISM [None]
  - FOETAL GROWTH RETARDATION [None]
  - LARYNGOMALACIA [None]
  - PULMONARY HYPERTENSION [None]
  - VENTRICULAR SEPTAL DEFECT [None]
